FAERS Safety Report 4734051-4 (Version None)
Quarter: 2005Q3

REPORT INFORMATION
  Report Type: 
  Country: None (occurrence: None)
  Receive Date: 20050721
  Receipt Date: 20050501
  Transmission Date: 20060218
  Serious: No
  Sender: FDA-Public Use
  Company Number: 2005SP000502

PATIENT
  Age: 52 Year
  Sex: Female

DRUGS (5)
  1. LUNESTA [Suspect]
     Indication: INSOMNIA
     Dosage: 3 MG;HS;ORAL
     Route: 048
  2. LUNESTA [Suspect]
     Indication: PAIN
     Dosage: 3 MG;HS;ORAL
     Route: 048
  3. DARVOCET-N 100 [Concomitant]
  4. ZOLOFT [Concomitant]
  5. TYLENOL [Concomitant]

REACTIONS (1)
  - INSOMNIA [None]
